FAERS Safety Report 21120001 (Version 2)
Quarter: 2023Q2

REPORT INFORMATION
  Report Type: Spontaneous
  Country: US (occurrence: US)
  Receive Date: 20220722
  Receipt Date: 20230630
  Transmission Date: 20230722
  Serious: Yes (Hospitalization)
  Sender: FDA-Public Use
  Company Number: US-GW PHARMA-2022-US-024097

PATIENT
  Sex: Female
  Weight: 30.385 kg

DRUGS (1)
  1. EPIDIOLEX [Suspect]
     Active Substance: CANNABIDIOL
     Indication: Riley-Day syndrome
     Dosage: 0.8 MILLILITER, BID
     Route: 048
     Dates: start: 20210116

REACTIONS (2)
  - Illness [Unknown]
  - Off label use [Unknown]
